FAERS Safety Report 20987729 (Version 1)
Quarter: 2022Q2

REPORT INFORMATION
  Report Type: Spontaneous
  Country: US (occurrence: None)
  Receive Date: 20220620
  Receipt Date: 20220620
  Transmission Date: 20220721
  Serious: Yes (Other)
  Sender: FDA-Public Use
  Company Number: None

PATIENT
  Age: 61 Year
  Sex: Female
  Weight: 80.1 kg

DRUGS (6)
  1. PAXLOVID [Suspect]
     Active Substance: NIRMATRELVIR\RITONAVIR
     Indication: COVID-19
     Dosage: OTHER QUANTITY : 3 TABLET(S);?FREQUENCY : TWICE A DAY;?
     Route: 048
     Dates: start: 20220619, end: 20220620
  2. lotensin [Concomitant]
  3. HYDROCHLOROTHIAZIDE [Concomitant]
     Active Substance: HYDROCHLOROTHIAZIDE
  4. VITAMIN D [Concomitant]
     Active Substance: VITAMIN D NOS
  5. OZEMPIC [Concomitant]
     Active Substance: SEMAGLUTIDE
  6. Oly immune powder [Concomitant]

REACTIONS (5)
  - Rash [None]
  - Rash [None]
  - Rash erythematous [None]
  - Rash pruritic [None]
  - Swelling [None]

NARRATIVE: CASE EVENT DATE: 20220620
